FAERS Safety Report 5054093-1 (Version None)
Quarter: 2006Q3

REPORT INFORMATION
  Report Type: 
  Country: None (occurrence: None)
  Receive Date: 20060713
  Receipt Date: 20060628
  Transmission Date: 20061208
  Serious: Yes (Hospitalization)
  Sender: FDA-Public Use
  Company Number: 226914

PATIENT
  Age: 68 Year
  Sex: Male
  Weight: 75 kg

DRUGS (6)
  1. RAPTIVA [Suspect]
     Indication: PSORIASIS
     Dosage: 0.75 ML, 1/WEEK, SUBCUTANEOUS
     Route: 058
     Dates: start: 20060210, end: 20060421
  2. HYDROXYZINE [Concomitant]
  3. BETAMETHASONE DIPROPIONATE [Concomitant]
  4. SALICYLIC ACID [Concomitant]
  5. DESLORATADINE [Concomitant]
  6. SALICYLIC ACID [Concomitant]

REACTIONS (2)
  - CHOLESTASIS [None]
  - SPLENOMEGALY [None]
